FAERS Safety Report 7222765-6 (Version None)
Quarter: 2011Q1

REPORT INFORMATION
  Report Type: 
  Country: None (occurrence: None)
  Receive Date: 20110106
  Receipt Date: 20110106
  Transmission Date: 20110831
  Serious: Yes (Hospitalization)
  Sender: FDA-Public Use
  Company Number: None

PATIENT
  Age: 91 Year
  Sex: Male
  Weight: 68.1 kg

DRUGS (3)
  1. LISINOPRIL [Concomitant]
  2. SOTALOL HCL [Suspect]
     Indication: ATRIAL FIBRILLATION
     Dosage: PO
     Route: 048
  3. METOPROLOL TARTRATE [Concomitant]

REACTIONS (2)
  - RASH [None]
  - ATRIAL FLUTTER [None]
